FAERS Safety Report 18821283 (Version 1)
Quarter: 2021Q1

REPORT INFORMATION
  Report Type: Spontaneous
  Country: US (occurrence: US)
  Receive Date: 20210201
  Receipt Date: 20210201
  Transmission Date: 20210419
  Serious: No
  Sender: FDA-Public Use
  Company Number: None

PATIENT
  Age: 34 Year
  Sex: Male

DRUGS (1)
  1. NORTREL 7/7/7 (28 DAY REGIMEN) [Suspect]
     Active Substance: ETHINYL ESTRADIOL\NORETHINDRONE
     Route: 048

REACTIONS (2)
  - Thrombosis [None]
  - Heart rate irregular [None]

NARRATIVE: CASE EVENT DATE: 20201102
